FAERS Safety Report 8158380-X (Version None)
Quarter: 2012Q1

REPORT INFORMATION
  Report Type: 
  Country: None (occurrence: None)
  Receive Date: 20120223
  Receipt Date: 20120214
  Transmission Date: 20120608
  Serious: Yes (Hospitalization, Other)
  Sender: FDA-Public Use
  Company Number: IL-PAR PHARMACEUTICAL, INC-2012SCPR004222

PATIENT

DRUGS (9)
  1. SULPIRIDE [Concomitant]
     Indication: SCHIZOPHRENIA
     Dosage: 1000 MG, / DAY
     Route: 065
  2. RISPERIDONE [Suspect]
     Indication: SCHIZOPHRENIA
     Dosage: 5 MG, / DAY
     Route: 065
  3. OLANZAPINE [Suspect]
     Indication: SCHIZOPHRENIA
     Dosage: 20 MG, / DAY
     Route: 065
  4. ZIPRASIDONE HYDROCHLORIDE [Suspect]
     Indication: SCHIZOPHRENIA
     Dosage: 40 MG, / DAY
     Route: 065
  5. ZIPRASIDONE HYDROCHLORIDE [Suspect]
     Dosage: 80 MG TWICE DAILY
     Route: 065
  6. QUETIAPINE [Suspect]
     Indication: SCHIZOPHRENIA
     Dosage: 600 MG, / DAY
     Route: 065
  7. HALOPERIDOL [Concomitant]
     Indication: SCHIZOPHRENIA
     Dosage: 15 MG, / DAY
     Route: 065
  8. ZIPRASIDONE HYDROCHLORIDE [Suspect]
     Dosage: 20 MG TWICE DAILY
     Route: 065
  9. ZUCLOPENTHIXOL [Concomitant]
     Indication: SCHIZOPHRENIA
     Dosage: 150 MG, / DAY
     Route: 065

REACTIONS (5)
  - PLEUROTHOTONUS [None]
  - OCULOGYRIC CRISIS [None]
  - EXTRAPYRAMIDAL DISORDER [None]
  - WEIGHT INCREASED [None]
  - MENTAL IMPAIRMENT [None]
